FAERS Safety Report 18675513 (Version 1)
Quarter: 2020Q4

REPORT INFORMATION
  Report Type: Spontaneous
  Country: JP (occurrence: JP)
  Receive Date: 20201229
  Receipt Date: 20201229
  Transmission Date: 20210114
  Serious: Yes (Other)
  Sender: FDA-Public Use
  Company Number: NVSJ2020JP013831

PATIENT
  Age: 53 Year
  Sex: Male

DRUGS (1)
  1. CYCLOSPORINE. [Suspect]
     Active Substance: CYCLOSPORINE
     Indication: APLASIA PURE RED CELL
     Dosage: UNK
     Route: 065

REACTIONS (9)
  - Blood beta-D-glucan increased [Unknown]
  - Pneumocystis jirovecii pneumonia [Unknown]
  - Pneumonia cytomegaloviral [Unknown]
  - Hypogammaglobulinaemia [Unknown]
  - Immunodeficiency [Unknown]
  - Good syndrome [Unknown]
  - Product use in unapproved indication [Unknown]
  - Drug eruption [Unknown]
  - Pyrexia [Recovering/Resolving]
